FAERS Safety Report 6186689-8 (Version None)
Quarter: 2009Q2

REPORT INFORMATION
  Report Type: 
  Country: None (occurrence: None)
  Receive Date: 20090508
  Receipt Date: 20090508
  Transmission Date: 20091009
  Serious: Yes (Other)
  Sender: FDA-Public Use
  Company Number: None

PATIENT
  Age: 15 Year
  Sex: Male

DRUGS (3)
  1. SERTRALINE HCL [Suspect]
     Indication: ANXIETY DISORDER
     Dosage: 100MG TWICE Q DY
     Dates: start: 20081022
  2. SERTRALINE HCL [Suspect]
     Indication: AUTISM
     Dosage: 100MG TWICE Q DY
     Dates: start: 20081022
  3. ZOLOFT [Suspect]

REACTIONS (2)
  - DYSPHEMIA [None]
  - PRODUCT SUBSTITUTION ISSUE [None]
